FAERS Safety Report 14033997 (Version 1)
Quarter: 2017Q4

REPORT INFORMATION
  Report Type: Spontaneous
  Country: FR (occurrence: FR)
  Receive Date: 20171003
  Receipt Date: 20171003
  Transmission Date: 20180321
  Serious: Yes (Other)
  Sender: FDA-Public Use
  Company Number: FR-MERCK KGAA-2028600

PATIENT
  Age: 82 Year
  Sex: Female

DRUGS (5)
  1. CHONDROITIN SULFATE SODIUM [Concomitant]
     Active Substance: CHONDROITIN SULFATE (CHICKEN)
  2. IRBESARTAN. [Concomitant]
     Active Substance: IRBESARTAN
  3. PARACETAMOL [Concomitant]
     Active Substance: ACETAMINOPHEN
  4. NOVOTHYROX [Suspect]
     Active Substance: LEVOTHYROXINE SODIUM
     Indication: PRODUCT USED FOR UNKNOWN INDICATION
     Dates: start: 201707
  5. PROPRANOLOL [Concomitant]
     Active Substance: PROPRANOLOL HYDROCHLORIDE

REACTIONS (1)
  - Arrhythmia [Unknown]

NARRATIVE: CASE EVENT DATE: 201707
